FAERS Safety Report 7383007-4 (Version None)
Quarter: 2011Q1

REPORT INFORMATION
  Report Type: 
  Country: None (occurrence: None)
  Receive Date: 20110328
  Receipt Date: 20110328
  Transmission Date: 20110831
  Serious: Yes (Hospitalization)
  Sender: FDA-Public Use
  Company Number: None

PATIENT
  Age: 57 Year
  Sex: Female
  Weight: 56.6996 kg

DRUGS (1)
  1. NEXIUM [Suspect]
     Indication: GASTROOESOPHAGEAL REFLUX DISEASE
     Dosage: 40 MG BID PO  4-5 YEARS
     Route: 048

REACTIONS (3)
  - CLOSTRIDIUM DIFFICILE COLITIS [None]
  - NEUROPATHY PERIPHERAL [None]
  - DIARRHOEA HAEMORRHAGIC [None]
